FAERS Safety Report 4985591-4 (Version None)
Quarter: 2006Q2

REPORT INFORMATION
  Report Type: 
  Country: None (occurrence: None)
  Receive Date: 20060428
  Receipt Date: 20060222
  Transmission Date: 20061013
  Serious: Yes (Hospitalization)
  Sender: FDA-Public Use
  Company Number: US-GLAXOSMITHKLINE-A0594776A

PATIENT
  Sex: Male

DRUGS (6)
  1. SEREVENT [Suspect]
     Indication: ASTHMA
     Dosage: 2PUFF TWICE PER DAY
     Route: 055
     Dates: start: 19950101
  2. COUMADIN [Concomitant]
  3. ALLEGRA [Concomitant]
  4. ALBUTEROL SULFATE AUTOHALER [Concomitant]
  5. LIPITOR [Concomitant]
  6. SINGULAIR [Concomitant]

REACTIONS (1)
  - VENTRICULAR EXTRASYSTOLES [None]
